FAERS Safety Report 7561873-7 (Version None)
Quarter: 2011Q2

REPORT INFORMATION
  Report Type: 
  Country: None (occurrence: None)
  Receive Date: 20110621
  Receipt Date: 20110608
  Transmission Date: 20111010
  Serious: Yes (Other)
  Sender: FDA-Public Use
  Company Number: PHEH2007US05478

PATIENT
  Sex: Female
  Weight: 56 kg

DRUGS (14)
  1. MULTI-VITAMINS [Concomitant]
  2. AREDIA [Suspect]
  3. AMBIEN [Concomitant]
  4. FOSAMAX [Suspect]
     Indication: OSTEOPOROSIS
     Dosage: 10 MG
     Dates: start: 19970507
  5. CALTRATE 600 + VITAMIN D [Concomitant]
     Dosage: 1 TABLET TWICE DAILY
  6. NYSTATIN [Concomitant]
     Dosage: THREE TIMES DAILY
  7. FLUOXETINE HCL [Concomitant]
     Dosage: 40 MG DAILY
  8. ZOMETA [Suspect]
     Indication: OSTEOPENIA
     Dosage: MONTHLY
     Route: 042
     Dates: start: 20020701, end: 20070501
  9. FISH OIL [Concomitant]
  10. EVISTA [Concomitant]
     Dosage: 60 MG DAILY
     Dates: start: 20071101
  11. SPORANOX [Concomitant]
     Dosage: 2 CAPS TWICE DAILY
  12. CHANTIX [Concomitant]
  13. CLONAZEPAM [Concomitant]
     Dosage: 0.5 MG THREE TIMES DAILY
  14. PROZAC [Concomitant]
     Dosage: 40 MG DAILY

REACTIONS (21)
  - PAIN [None]
  - INJURY [None]
  - IMPAIRED HEALING [None]
  - OSTEOPENIA [None]
  - MUSCLE SPASMS [None]
  - CERVICOBRACHIAL SYNDROME [None]
  - OSTEOSCLEROSIS [None]
  - MONOCLONAL GAMMOPATHY [None]
  - CARPAL TUNNEL SYNDROME [None]
  - HYPOAESTHESIA [None]
  - NECK PAIN [None]
  - TOOTH LOSS [None]
  - IMPLANT SITE SWELLING [None]
  - FISTULA [None]
  - PAIN IN EXTREMITY [None]
  - ANXIETY [None]
  - PARAPROTEINAEMIA [None]
  - OSTEONECROSIS OF JAW [None]
  - INTERVERTEBRAL DISC PROTRUSION [None]
  - PARAESTHESIA [None]
  - PRIMARY SEQUESTRUM [None]
